FAERS Safety Report 8672690 (Version 4)
Quarter: 2013Q1

REPORT INFORMATION
  Report Type: Spontaneous
  Country: US (occurrence: US)
  Receive Date: 20120719
  Receipt Date: 20130123
  Transmission Date: 20140127
  Serious: Yes (Other)
  Sender: FDA-Public Use
  Company Number: US-009507513-1207USA003754

PATIENT
  Sex: 0

DRUGS (11)
  1. FOSAMAX [Suspect]
     Indication: OSTEOPENIA
     Dosage: UNK
     Route: 048
     Dates: start: 2000, end: 201201
  2. FOSAMAX PLUS D [Suspect]
     Indication: OSTEOPENIA
     Dosage: 70 MG, QW
     Route: 048
     Dates: start: 1999, end: 201201
  3. FOSAMAX [Suspect]
     Indication: OSTEOPENIA
     Dosage: 70 MG, UNK
     Route: 048
  4. SYNTHROID [Concomitant]
     Indication: HYPOTHYROIDISM
     Dosage: 125 MICROGRAM, QD
     Dates: start: 1985
  5. SPIRONOLACTONE [Concomitant]
     Indication: FLUID RETENTION
     Dosage: 10 MG, UNK
     Dates: start: 1994
  6. VITAMINS (UNSPECIFIED) [Concomitant]
     Dosage: UNK
     Dates: start: 1992
  7. ALENDRONATE SODIUM [Suspect]
     Indication: OSTEOPENIA
     Dosage: 70 MG, QW
     Route: 048
  8. OMEGA-3 MARINE TRIGLYCERIDES [Concomitant]
  9. TUMS [Concomitant]
  10. HORMONES (UNSPECIFIED) [Concomitant]
  11. ASPIRIN [Concomitant]

REACTIONS (25)
  - Surgery [Unknown]
  - Female sterilisation [Unknown]
  - Appendicectomy [Unknown]
  - Femur fracture [Unknown]
  - Low turnover osteopathy [Unknown]
  - Orthodontic procedure [Unknown]
  - Hypercholesterolaemia [Unknown]
  - Herpes virus infection [Unknown]
  - Bursitis [Unknown]
  - Ligament sprain [Unknown]
  - Breast pain [Unknown]
  - Sneezing [Unknown]
  - Fibrocystic breast disease [Unknown]
  - Breast disorder [Unknown]
  - Spondylolisthesis [Unknown]
  - Basedow^s disease [Unknown]
  - Urinary tract infection [Unknown]
  - Depression [Unknown]
  - Migraine without aura [Unknown]
  - Insomnia [Unknown]
  - Bunion [Unknown]
  - Adverse event [Unknown]
  - Sciatica [Unknown]
  - Abdominal discomfort [Unknown]
  - Arthralgia [Unknown]
